FAERS Safety Report 5027665-8 (Version None)
Quarter: 2006Q2

REPORT INFORMATION
  Report Type: 
  Country: None (occurrence: None)
  Receive Date: 20060616
  Receipt Date: 20060531
  Transmission Date: 20061013
  Serious: Yes (Other)
  Sender: FDA-Public Use
  Company Number: PHBS2006JP08329

PATIENT
  Age: 42 Year
  Sex: Female

DRUGS (2)
  1. CYCLOSPORINE [Suspect]
     Indication: BONE MARROW TRANSPLANT
     Route: 065
  2. TACROLIMUS [Suspect]
     Indication: BONE MARROW TRANSPLANT
     Route: 065

REACTIONS (4)
  - APRAXIA [None]
  - DIFFICULTY IN WALKING [None]
  - INSOMNIA [None]
  - PAIN [None]
